FAERS Safety Report 18626890 (Version 2)
Quarter: 2025Q4

REPORT INFORMATION
  Report Type: Report from Study
  Country: JP (occurrence: JP)
  Receive Date: 20201217
  Receipt Date: 20251013
  Transmission Date: 20260119
  Serious: Yes (Hospitalization, Other)
  Sender: ROCHE
  Company Number: JP-ROCHE-1796075

PATIENT
  Age: 5 Year
  Sex: Male
  Weight: 20.55 kg

DRUGS (16)
  1. RITUXIMAB [Suspect]
     Active Substance: RITUXIMAB
     Indication: Nephrotic syndrome
     Dosage: 10MG/ML
     Route: 042
     Dates: end: 20160615
  2. RITUXIMAB [Suspect]
     Active Substance: RITUXIMAB
     Route: 042
  3. RITUXIMAB [Suspect]
     Active Substance: RITUXIMAB
     Route: 042
     Dates: start: 20130228, end: 20130228
  4. RITUXIMAB [Suspect]
     Active Substance: RITUXIMAB
     Route: 042
     Dates: start: 20161012, end: 20161012
  5. RITUXIMAB [Suspect]
     Active Substance: RITUXIMAB
     Route: 042
  6. MYCOPHENOLATE MOFETIL [Concomitant]
     Active Substance: MYCOPHENOLATE MOFETIL
  7. METHYLPREDNISOLONE [Concomitant]
     Active Substance: METHYLPREDNISOLONE
     Indication: Premedication
     Dates: start: 20160615, end: 20160615
  8. METHYLPREDNISOLONE [Concomitant]
     Active Substance: METHYLPREDNISOLONE
     Dates: start: 20161012, end: 20161012
  9. ACETAMINOPHEN [Concomitant]
     Active Substance: ACETAMINOPHEN
     Indication: Premedication
     Dates: start: 20160615, end: 20160615
  10. ACETAMINOPHEN [Concomitant]
     Active Substance: ACETAMINOPHEN
     Dates: start: 20161012, end: 20161012
  11. MIZORIBINE [Concomitant]
     Active Substance: MIZORIBINE
     Indication: Nephrotic syndrome
     Route: 048
  12. CYCLOPHOSPHAMIDE [Concomitant]
     Active Substance: CYCLOPHOSPHAMIDE
     Indication: Nephrotic syndrome
  13. DEXCHLORPHENIRAMINE MALEATE [Concomitant]
     Active Substance: DEXCHLORPHENIRAMINE MALEATE
     Indication: Premedication
  14. HYDROXYZINE HYDROCHLORIDE [Concomitant]
     Active Substance: HYDROXYZINE HYDROCHLORIDE
     Indication: Premedication
  15. METHYLPREDNISOLONE SODIUM SUCCINATE [Concomitant]
     Active Substance: METHYLPREDNISOLONE SODIUM SUCCINATE
     Indication: Premedication
  16. FAMOTIDINE [Concomitant]
     Active Substance: FAMOTIDINE

REACTIONS (7)
  - Rash [Recovered/Resolved]
  - Infusion related reaction [Unknown]
  - Cough [Recovered/Resolved]
  - Malaise [Unknown]
  - Tachycardia [Recovered/Resolved]
  - Infusion related reaction [Recovered/Resolved]
  - Treatment failure [Unknown]

NARRATIVE: CASE EVENT DATE: 20130228
